FAERS Safety Report 7945511-7 (Version None)
Quarter: 2011Q4

REPORT INFORMATION
  Report Type: 
  Country: None (occurrence: None)
  Receive Date: 20111129
  Receipt Date: 20111121
  Transmission Date: 20120403
  Serious: Yes (Hospitalization, Other)
  Sender: FDA-Public Use
  Company Number: RS-ROXANE LABORATORIES, INC.-2011-RO-01670RO

PATIENT
  Age: 13 Year
  Sex: Female

DRUGS (4)
  1. PREDNISONE TAB [Suspect]
     Indication: PEMPHIGUS
  2. CALCIUM CARBONATE [Suspect]
     Indication: MINERAL SUPPLEMENTATION
  3. VITAMIN D [Suspect]
     Indication: SUPPLEMENTATION THERAPY
  4. AZATHIOPRINE [Suspect]
     Indication: PEMPHIGUS

REACTIONS (4)
  - PEMPHIGUS [None]
  - SPINAL COMPRESSION FRACTURE [None]
  - CUSHING'S SYNDROME [None]
  - OSTEOPOROSIS [None]
